APPROVED DRUG PRODUCT: MAXAIR
Active Ingredient: PIRBUTEROL ACETATE
Strength: EQ 0.2MG BASE/INH
Dosage Form/Route: AEROSOL, METERED;INHALATION
Application: N020014 | Product #001
Applicant: BAUSCH HEALTH US LLC
Approved: Nov 30, 1992 | RLD: No | RS: No | Type: DISCN